FAERS Safety Report 25361623 (Version 1)
Quarter: 2025Q2

REPORT INFORMATION
  Report Type: Other
  Country: ES (occurrence: ES)
  Receive Date: 20250527
  Receipt Date: 20250527
  Transmission Date: 20250717
  Serious: Yes (Hospitalization, Other)
  Sender: GLENMARK
  Company Number: None

PATIENT

DRUGS (6)
  1. TELMISARTAN [Suspect]
     Active Substance: TELMISARTAN
     Indication: Product used for unknown indication
     Dosage: 80 MILLIGRAM, OD (1/24H)
     Route: 065
     Dates: start: 20240617
  2. ARCOXIA [Suspect]
     Active Substance: ETORICOXIB
     Indication: Nasopharyngitis
     Route: 048
     Dates: start: 20241117, end: 20241120
  3. TRAZODONE HYDROCHLORIDE [Suspect]
     Active Substance: TRAZODONE HYDROCHLORIDE
     Indication: Product used for unknown indication
     Dosage: 100 MILLIGRAM, OD (1/24H)
     Route: 065
     Dates: start: 20201119
  4. BISOPROLOL [Suspect]
     Active Substance: BISOPROLOL
     Indication: Product used for unknown indication
     Dosage: 10 MILLIGRAM, OD (1/24H)
     Route: 065
     Dates: start: 20211110
  5. Terazosina [Concomitant]
     Indication: Product used for unknown indication
     Dosage: 5 MILLIGRAM, OD (1/24H)
     Route: 065
     Dates: start: 20190617
  6. TELMISARTAN [Suspect]
     Active Substance: TELMISARTAN

REACTIONS (3)
  - Melaena [Recovered/Resolved]
  - Malaise [Recovered/Resolved]
  - Abdominal pain [Recovered/Resolved]

NARRATIVE: CASE EVENT DATE: 20241117
